FAERS Safety Report 19885818 (Version 1)
Quarter: 2021Q3

REPORT INFORMATION
  Report Type: Spontaneous
  Country: FI (occurrence: FI)
  Receive Date: 20210927
  Receipt Date: 20210927
  Transmission Date: 20211014
  Serious: Yes (Hospitalization, Other)
  Sender: FDA-Public Use
  Company Number: FI-B.I. PHARMACEUTICALS,INC./RIDGEFIELD-2021-BI-128837

PATIENT
  Age: 93 Year
  Sex: Female

DRUGS (12)
  1. KALEORID [Concomitant]
     Active Substance: POTASSIUM CHLORIDE
     Indication: HYPOKALAEMIA
     Dosage: 1,G,DAILY
     Route: 048
     Dates: start: 201904
  2. AMLODIPINE [Concomitant]
     Active Substance: AMLODIPINE BESYLATE
     Indication: HYPERTENSION
     Dosage: 10,MG,DAILY
     Route: 048
     Dates: start: 201912
  3. KALCIPOS?D [Concomitant]
     Active Substance: CALCIUM CARBONATE\CHOLECALCIFEROL
     Indication: OSTEOPOROSIS PROPHYLAXIS
     Dosage: 2,DF,DAILY
     Route: 048
     Dates: start: 201202
  4. PRADAXA [Suspect]
     Active Substance: DABIGATRAN ETEXILATE MESYLATE
     Indication: THROMBOSIS PROPHYLAXIS
     Dosage: 220,MG,DAILY
     Route: 048
     Dates: start: 20180503
  5. LOSATRIX [Concomitant]
     Active Substance: LOSARTAN POTASSIUM
     Indication: HYPERTENSION
     Dosage: 100,MG,DAILY
     Route: 048
     Dates: start: 201710
  6. NITROSID [Concomitant]
     Indication: CORONARY ARTERY DISEASE
     Dosage: 40,MG,DAILY
     Route: 048
     Dates: start: 201203
  7. METOCLOPRAMIDE. [Concomitant]
     Active Substance: METOCLOPRAMIDE
     Indication: NAUSEA
     Dosage: 20,MG,DAILY
     Route: 048
     Dates: start: 201806
  8. MEDITHYROX [Concomitant]
     Indication: PRODUCT USED FOR UNKNOWN INDICATION
     Route: 048
     Dates: start: 201907
  9. BISOPROLOL [Concomitant]
     Active Substance: BISOPROLOL
     Indication: CORONARY ARTERY DISEASE
     Dosage: 10,MG,DAILY
     Route: 048
     Dates: start: 201805
  10. ALVESCO [Concomitant]
     Active Substance: CICLESONIDE
     Indication: ASTHMA
     Dosage: 320,?G,DAILY
     Route: 055
     Dates: start: 201812
  11. MELATONIN ORION [Concomitant]
     Active Substance: MELATONIN
     Indication: INSOMNIA
     Dosage: 3,MG,DAILY
     Route: 048
  12. PAUSANOL [Concomitant]
     Indication: MENOPAUSAL SYMPTOMS
     Route: 067
     Dates: start: 202002

REACTIONS (2)
  - Drug ineffective [Recovered/Resolved]
  - Transient ischaemic attack [Recovered/Resolved]

NARRATIVE: CASE EVENT DATE: 20210825
